FAERS Safety Report 20663379 (Version 4)
Quarter: 2022Q3

REPORT INFORMATION
  Report Type: Spontaneous
  Country: JP (occurrence: JP)
  Receive Date: 20220401
  Receipt Date: 20220715
  Transmission Date: 20221027
  Serious: No
  Sender: FDA-Public Use
  Company Number: JP-GLAXOSMITHKLINE-JP2022JPN055109

PATIENT

DRUGS (10)
  1. SOTROVIMAB [Suspect]
     Active Substance: SOTROVIMAB
     Indication: COVID-19
     Dosage: 500 MG, QD
     Dates: start: 20220309
  2. PROGRAF [Concomitant]
     Active Substance: TACROLIMUS
     Indication: Systemic lupus erythematosus
     Dosage: 2 MG, QD
  3. PROGRAF [Concomitant]
     Active Substance: TACROLIMUS
     Indication: Rheumatoid arthritis
  4. ASPIRIN [Concomitant]
     Active Substance: ASPIRIN
     Indication: Cerebral infarction
     Dosage: 100 MG, QD
  5. ATORVASTATIN CALCIUM [Concomitant]
     Active Substance: ATORVASTATIN CALCIUM
     Indication: Hypercholesterolaemia
     Dosage: 10 MG, QD
  6. ASPARA-CA TABLETS [Concomitant]
     Indication: Osteoporosis
     Dosage: 1200 MG, QD
  7. PREDNISOLONE [Concomitant]
     Active Substance: PREDNISOLONE
     Indication: Systemic lupus erythematosus
     Dosage: 1.5 MG, TID
  8. PREDNISOLONE [Concomitant]
     Active Substance: PREDNISOLONE
     Indication: Rheumatic disorder
  9. BERAPROST NA TABLETS [Concomitant]
     Indication: Peripheral ischaemia
     Dosage: 20 ?G, BID
     Dates: start: 20220105
  10. CALONAL [Concomitant]
     Active Substance: ACETAMINOPHEN
     Indication: Antipyresis
     Dosage: 400 MG, WHEN HAVING PYREXIA, ON AN AS-NEEDED BASIS
     Dates: start: 20220309

REACTIONS (3)
  - Oropharyngeal discomfort [Recovering/Resolving]
  - Chills [Recovering/Resolving]
  - Infusion related reaction [Recovered/Resolved]
